FAERS Safety Report 20371220 (Version 2)
Quarter: 2022Q1

REPORT INFORMATION
  Report Type: Spontaneous
  Country: US (occurrence: US)
  Receive Date: 20220124
  Receipt Date: 20220204
  Transmission Date: 20220423
  Serious: Yes (Other)
  Sender: FDA-Public Use
  Company Number: US-TEVA-2022-US-2001124

PATIENT
  Age: 68 Year
  Sex: Female

DRUGS (6)
  1. BENDAMUSTINE [Suspect]
     Active Substance: BENDAMUSTINE
     Indication: Lymphoproliferative disorder
     Route: 065
     Dates: start: 20190322
  2. RITUXIMAB [Suspect]
     Active Substance: RITUXIMAB
     Indication: Lymphoproliferative disorder
     Route: 065
     Dates: start: 20190322
  3. VEMURAFENIB [Suspect]
     Active Substance: VEMURAFENIB
     Indication: Hairy cell leukaemia
     Dosage: 480 MILLIGRAM DAILY;
     Route: 065
     Dates: start: 20190530
  4. VEMURAFENIB [Suspect]
     Active Substance: VEMURAFENIB
     Dosage: 240 MILLIGRAM DAILY;
     Route: 065
     Dates: start: 20190611, end: 20190712
  5. VEMURAFENIB [Suspect]
     Active Substance: VEMURAFENIB
     Dosage: 480 MILLIGRAM DAILY;
     Route: 065
     Dates: start: 20190713
  6. VEMURAFENIB [Suspect]
     Active Substance: VEMURAFENIB
     Dosage: 960 MILLIGRAM DAILY; LATER, PROLONGED TAPER, COMPLETING 9 CYCLES
     Route: 065
     Dates: start: 20190801, end: 20200313

REACTIONS (5)
  - Drug eruption [Unknown]
  - Neutropenic sepsis [Unknown]
  - Generalised oedema [Unknown]
  - Deep vein thrombosis [Unknown]
  - Off label use [Unknown]

NARRATIVE: CASE EVENT DATE: 20190101
